FAERS Safety Report 23142675 (Version 24)
Quarter: 2025Q4

REPORT INFORMATION
  Report Type: Spontaneous
  Country: CA (occurrence: CA)
  Receive Date: 20231103
  Receipt Date: 20251226
  Transmission Date: 20260118
  Serious: Yes (Congenital Anomaly, Other)
  Sender: CELLTRION
  Company Number: CA-CELLTRION INC.-2023CA021192

PATIENT

DRUGS (28)
  1. INFLECTRA [Suspect]
     Active Substance: INFLIXIMAB-DYYB
     Indication: Crohn^s disease
     Dosage: 400 MG EVERY 8 WEEK, INDUCTION AT 0, 2, 6 WEEK
     Route: 042
     Dates: start: 20201002, end: 20201002
  2. INFLECTRA [Suspect]
     Active Substance: INFLIXIMAB-DYYB
     Dosage: 400 MG EVERY 8 WEEKS, INDUCTION AT 0, 2, 6 WEEK
     Route: 042
     Dates: start: 20201002, end: 20201112
  3. INFLECTRA [Suspect]
     Active Substance: INFLIXIMAB-DYYB
     Dosage: 400 MG EVERY 4 WEEK
     Route: 042
     Dates: start: 20210114, end: 20220224
  4. INFLECTRA [Suspect]
     Active Substance: INFLIXIMAB-DYYB
     Dosage: 600 MG EVERY 4 WEEK
     Route: 042
     Dates: start: 20220411
  5. INFLECTRA [Suspect]
     Active Substance: INFLIXIMAB-DYYB
     Dosage: 600 MG EVERY 4 WEEK
     Route: 042
     Dates: start: 20230928
  6. INFLECTRA [Suspect]
     Active Substance: INFLIXIMAB-DYYB
     Dosage: 600 MG EVERY 4 WEEK
     Route: 042
     Dates: start: 20231026
  7. INFLECTRA [Suspect]
     Active Substance: INFLIXIMAB-DYYB
     Dosage: 600 MG EVERY 4 WEEK (AFTER 7 WEEKS)
     Route: 042
     Dates: start: 20231214
  8. INFLECTRA [Suspect]
     Active Substance: INFLIXIMAB-DYYB
     Dosage: 600 MG EVERY 4 WEEK (600MG AFTER 6 WEEKS)
     Route: 042
     Dates: start: 20240129
  9. INFLECTRA [Suspect]
     Active Substance: INFLIXIMAB-DYYB
     Dosage: 600 MG, EVERY 4 WEEK
     Route: 042
     Dates: start: 20240909
  10. INFLECTRA [Suspect]
     Active Substance: INFLIXIMAB-DYYB
     Dosage: 600 MG, 8 WEEKS (EVERY 4 WEEK)
     Route: 042
     Dates: start: 20241104
  11. INFLECTRA [Suspect]
     Active Substance: INFLIXIMAB-DYYB
     Dosage: 600 MG, 10 WEEKS 1 DAYS (EVERY 4 WEEK)
     Route: 042
     Dates: start: 20250114
  12. INFLECTRA [Suspect]
     Active Substance: INFLIXIMAB-DYYB
     Dosage: 600 MG, EVERY 4 WEEKS
     Route: 042
     Dates: start: 20250210
  13. INFLECTRA [Suspect]
     Active Substance: INFLIXIMAB-DYYB
     Dosage: 600 MG, EVERY 4 WEEKS
     Route: 042
     Dates: start: 20250311
  14. INFLECTRA [Suspect]
     Active Substance: INFLIXIMAB-DYYB
     Dosage: 600 MG, EVERY 4 WEEKS
     Route: 042
     Dates: start: 20250408
  15. INFLECTRA [Suspect]
     Active Substance: INFLIXIMAB-DYYB
     Dosage: AFTER 4 WEEKS
     Route: 042
     Dates: start: 20250506
  16. INFLECTRA [Suspect]
     Active Substance: INFLIXIMAB-DYYB
     Dosage: AFTER 4 WEEKS
     Route: 042
     Dates: start: 20250603
  17. IXIFI [Suspect]
     Active Substance: INFLIXIMAB-QBTX
     Indication: Crohn^s disease
     Dosage: 600 MG EVERY 4 WEEKS
     Route: 042
     Dates: start: 20250729, end: 20250923
  18. IXIFI [Suspect]
     Active Substance: INFLIXIMAB-QBTX
     Dosage: 5 MG/KG, EVERY 4 WEEKS
     Route: 042
     Dates: start: 20251021
  19. IXIFI [Suspect]
     Active Substance: INFLIXIMAB-QBTX
     Dosage: UNK
     Dates: start: 20251117
  20. AMLODIPINE [Concomitant]
     Active Substance: AMLODIPINE BESYLATE
     Dosage: 2.5 MG (1 DF)
     Route: 065
  21. AZATHIOPRINE [Concomitant]
     Active Substance: AZATHIOPRINE
     Dosage: 150 MG
  22. BISOPROLOL FUMARATE\HYDROCHLOROTHIAZIDE [Concomitant]
     Active Substance: BISOPROLOL FUMARATE\HYDROCHLOROTHIAZIDE
     Dosage: 50 MG
  23. CALCIUM [Concomitant]
     Active Substance: CALCIUM
     Dosage: 1000 MG
  24. CITALOPRAM [Concomitant]
     Active Substance: CITALOPRAM
     Dosage: 10 MG
  25. CENTRUM GENDER +50 [Concomitant]
     Dosage: 1 DF
  26. METAMUCIL CALCIUM [Concomitant]
     Dosage: UNK, 2X/DAY(DAILY AM + PM; WHEN NEEDED)
  27. MESALAMINE [Concomitant]
     Active Substance: MESALAMINE
     Dosage: 1 DF (SUPP)
  28. CHOLECALCIFEROL [Concomitant]
     Active Substance: CHOLECALCIFEROL
     Dosage: 2000 IU

REACTIONS (26)
  - Thrombosis [Unknown]
  - Cough [Not Recovered/Not Resolved]
  - Vitreous detachment [Unknown]
  - Swelling [Recovered/Resolved]
  - Dyspnoea [Not Recovered/Not Resolved]
  - Arthralgia [Recovered/Resolved]
  - Nasopharyngitis [Recovered/Resolved]
  - COVID-19 [Not Recovered/Not Resolved]
  - Aphthous ulcer [Recovered/Resolved]
  - Malaise [Not Recovered/Not Resolved]
  - Productive cough [Unknown]
  - Urinary incontinence [Unknown]
  - Condition aggravated [Recovering/Resolving]
  - Throat irritation [Unknown]
  - Ageusia [Unknown]
  - Oropharyngeal pain [Unknown]
  - Parosmia [Unknown]
  - Influenza like illness [Unknown]
  - Arthralgia [Not Recovered/Not Resolved]
  - Sinusitis [Not Recovered/Not Resolved]
  - Chills [Unknown]
  - Cystitis [Unknown]
  - Illness [Recovering/Resolving]
  - Pyrexia [Unknown]
  - Overdose [Unknown]
  - Intentional product use issue [Unknown]

NARRATIVE: CASE EVENT DATE: 20230101
